FAERS Safety Report 8566992-4 (Version None)
Quarter: 2012Q3

REPORT INFORMATION
  Report Type: 
  Country: None (occurrence: None)
  Receive Date: 20120803
  Receipt Date: 20110909
  Transmission Date: 20120928
  Serious: No
  Sender: FDA-Public Use
  Company Number: US-ABBOTT-11P-163-0853165-00

PATIENT
  Age: 62 Year
  Sex: Male
  Weight: 79.45 kg

DRUGS (3)
  1. CRESTOR [Suspect]
     Indication: HIGH DENSITY LIPOPROTEIN DECREASED
  2. TOPROL-XL [Concomitant]
     Indication: DRUG THERAPY
  3. NIASPAN [Suspect]
     Indication: HIGH DENSITY LIPOPROTEIN DECREASED
     Dates: start: 20090101, end: 20110701

REACTIONS (14)
  - OEDEMA PERIPHERAL [None]
  - LIVER FUNCTION TEST ABNORMAL [None]
  - ARTHRALGIA [None]
  - RED BLOOD CELL MORPHOLOGY ABNORMAL [None]
  - BLOOD CALCIUM DECREASED [None]
  - ASTHENIA [None]
  - HYPERHIDROSIS [None]
  - COELIAC DISEASE [None]
  - ANAEMIA [None]
  - ILL-DEFINED DISORDER [None]
  - PLATELET COUNT DECREASED [None]
  - DYSPNOEA [None]
  - OSTEOPOROSIS [None]
  - PHOTOPHOBIA [None]
